FAERS Safety Report 15949088 (Version 5)
Quarter: 2019Q2

REPORT INFORMATION
  Report Type: Report from Study
  Country: CA (occurrence: CA)
  Receive Date: 20190212
  Receipt Date: 20190407
  Transmission Date: 20190711
  Serious: Yes (Other)
  Sender: FDA-Public Use
  Company Number: CA-ROCHE-2159113

PATIENT
  Age: 35 Year
  Sex: Male

DRUGS (5)
  1. TRIMIX (ALPROSTADIL/PAPAVERINE HYDROCHLORIDE/PHENTOLAMINE HYDROCHLORID [Concomitant]
     Indication: ERECTILE DYSFUNCTION
  2. OCREVUS [Suspect]
     Active Substance: OCRELIZUMAB
     Route: 042
     Dates: end: 201903
  3. AMOXICILLIN. [Concomitant]
     Active Substance: AMOXICILLIN
     Indication: LYME DISEASE
  4. DOXYCYCLINE. [Concomitant]
     Active Substance: DOXYCYCLINE
     Indication: LYME DISEASE
  5. OCREVUS [Suspect]
     Active Substance: OCRELIZUMAB
     Indication: RELAPSING-REMITTING MULTIPLE SCLEROSIS
     Dosage: 300 MG DAY 0 AND 14 (HOLD)
     Route: 042
     Dates: start: 20180104

REACTIONS (8)
  - Defaecation urgency [Not Recovered/Not Resolved]
  - Pneumonia [Unknown]
  - Multiple sclerosis [Unknown]
  - Malaise [Unknown]
  - Constipation [Not Recovered/Not Resolved]
  - Headache [Recovered/Resolved]
  - Influenza [Recovering/Resolving]
  - Lower respiratory tract infection [Recovered/Resolved]

NARRATIVE: CASE EVENT DATE: 201805
